FAERS Safety Report 11415914 (Version 1)
Quarter: 2015Q3

REPORT INFORMATION
  Report Type: Spontaneous
  Country: FR (occurrence: FR)
  Receive Date: 20150825
  Receipt Date: 20150825
  Transmission Date: 20151125
  Serious: Yes (Hospitalization, Other)
  Sender: FDA-Public Use
  Company Number: FR-PFIZER INC-2015281700

PATIENT
  Age: 77 Year
  Sex: Male

DRUGS (12)
  1. IPERTEN [Suspect]
     Active Substance: MANIDIPINE
     Dosage: UNK
     Route: 048
  2. NISIS [Suspect]
     Active Substance: VALSARTAN
     Dosage: UNK
     Route: 048
  3. LEXOMIL [Suspect]
     Active Substance: BROMAZEPAM
     Dosage: 12 MG, UNK
     Route: 048
  4. MECIR [Suspect]
     Active Substance: TAMSULOSIN HYDROCHLORIDE
     Dosage: UNK
     Route: 048
  5. TEMESTA /00273201/ [Suspect]
     Active Substance: LORAZEPAM
     Dosage: UNK
     Route: 048
  6. DIAMICRON [Suspect]
     Active Substance: GLICLAZIDE
     Indication: TYPE 2 DIABETES MELLITUS
     Dosage: UNK
     Route: 048
  7. JANUVIA [Suspect]
     Active Substance: SITAGLIPTIN PHOSPHATE
     Dosage: UNK
     Route: 048
  8. MOPRAL /00661201/ [Suspect]
     Active Substance: OMEPRAZOLE SODIUM
     Dosage: UNK
     Route: 048
  9. ORELOX [Suspect]
     Active Substance: CEFPODOXIME
     Dosage: UNK
     Route: 048
     Dates: start: 201501, end: 20150129
  10. FLUDEX /00340101/ [Suspect]
     Active Substance: INDAPAMIDE
     Dosage: UNK
     Route: 048
  11. SPIRONOLACTONE. [Suspect]
     Active Substance: SPIRONOLACTONE
     Dosage: UNK
     Route: 048
  12. NEBILOX [Suspect]
     Active Substance: NEBIVOLOL HYDROCHLORIDE
     Dosage: UNK
     Route: 048

REACTIONS (1)
  - Dermatitis bullous [Not Recovered/Not Resolved]

NARRATIVE: CASE EVENT DATE: 20150121
